FAERS Safety Report 7889996-3 (Version None)
Quarter: 2011Q4

REPORT INFORMATION
  Report Type: 
  Country: None (occurrence: None)
  Receive Date: 20111103
  Receipt Date: 20111026
  Transmission Date: 20120403
  Serious: Yes (Other)
  Sender: FDA-Public Use
  Company Number: PHEH2011US08096

PATIENT
  Age: 78 Year
  Sex: Female

DRUGS (1)
  1. LOPRESSOR [Suspect]
     Dates: start: 19850101

REACTIONS (2)
  - ANGINA PECTORIS [None]
  - ARRHYTHMIA [None]
